FAERS Safety Report 9708460 (Version 1)
Quarter: 2013Q4

REPORT INFORMATION
  Report Type: Spontaneous
  Country: DE (occurrence: DE)
  Receive Date: 20131125
  Receipt Date: 20131125
  Transmission Date: 20140711
  Serious: Yes (Other)
  Sender: FDA-Public Use
  Company Number: DE-TEVA-445373GER

PATIENT
  Age: 1 Day
  Sex: Male

DRUGS (4)
  1. SERTRALINE [Suspect]
     Route: 064
  2. LIPROLOG [Suspect]
     Route: 064
  3. LANTUS [Suspect]
     Route: 064
  4. L-THYROXIN [Concomitant]
     Route: 064

REACTIONS (4)
  - Premature baby [Recovering/Resolving]
  - Neonatal respiratory distress syndrome [Recovered/Resolved]
  - Hyperbilirubinaemia neonatal [Recovered/Resolved]
  - Hypoglycaemia neonatal [Recovered/Resolved]
